FAERS Safety Report 11375134 (Version 1)
Quarter: 2015Q3

REPORT INFORMATION
  Report Type: Spontaneous
  Country: AU (occurrence: AU)
  Receive Date: 20150813
  Receipt Date: 20150813
  Transmission Date: 20151125
  Serious: Yes (Hospitalization, Other)
  Sender: FDA-Public Use
  Company Number: AU-WATSON-2015-17044

PATIENT
  Age: 51 Year
  Sex: Female

DRUGS (5)
  1. INDOMETACIN [Suspect]
     Active Substance: INDOMETHACIN
     Indication: RENAL COLIC
     Dosage: 1 DF, TOTAL
     Route: 054
  2. PARACETAMOL [Concomitant]
     Active Substance: ACETAMINOPHEN
     Indication: RENAL COLIC
     Dosage: 1 G, TOTAL
     Route: 065
  3. OXYCODONE [Concomitant]
     Active Substance: OXYCODONE
     Indication: RENAL COLIC
     Dosage: 5 MG, TOTAL
     Route: 065
  4. RIZATRIPTAN (UNKNOWN) [Suspect]
     Active Substance: RIZATRIPTAN
     Indication: THUNDERCLAP HEADACHE
     Dosage: 3 DF, TOTAL - OVER A PERIOD OF 24 HOURS
     Route: 048
  5. TRAMADOL. [Concomitant]
     Active Substance: TRAMADOL
     Indication: THUNDERCLAP HEADACHE
     Dosage: SELF-ADMINISTERED
     Route: 065

REACTIONS (2)
  - Subarachnoid haemorrhage [Unknown]
  - Reversible cerebral vasoconstriction syndrome [Recovered/Resolved]
